FAERS Safety Report 4341530-0 (Version None)
Quarter: 2004Q2

REPORT INFORMATION
  Report Type: 
  Country: None (occurrence: None)
  Receive Date: 20040420
  Receipt Date: 20040414
  Transmission Date: 20050107
  Serious: Yes (Other)
  Sender: FDA-Public Use
  Company Number: CA-JNJFOC-20031105267

PATIENT
  Sex: Female
  Weight: 63 kg

DRUGS (7)
  1. DOXORUBICIN HYDROCHLORIDE [Suspect]
     Indication: BREAST CANCER
     Route: 042
     Dates: start: 20030505, end: 20030904
  2. HERCEPTIN [Suspect]
     Indication: BREAST CANCER
     Dosage: 9 CYCLES
     Route: 042
     Dates: start: 20030506, end: 20031106
  3. IMOVANE [Concomitant]
     Indication: INSOMNIA
     Dates: start: 20030515
  4. TYLENOL W/ CODEINE [Concomitant]
     Dates: start: 20030101
  5. TYLENOL W/ CODEINE [Concomitant]
     Indication: BACK PAIN
     Dosage: 1-2 TABLETS PRN FOR BACK PAIN.
     Dates: start: 20030101
  6. CLODRONATE DISODIUM [Concomitant]
     Dates: start: 20030904
  7. PRODIEM PLAIN [Concomitant]
     Indication: CONSTIPATION
     Route: 049

REACTIONS (5)
  - AORTIC VALVE SCLEROSIS [None]
  - DYSPHAGIA [None]
  - EJECTION FRACTION DECREASED [None]
  - MITRAL VALVE DISEASE [None]
  - TRANSIENT ISCHAEMIC ATTACK [None]
